FAERS Safety Report 5224237-7 (Version None)
Quarter: 2007Q1

REPORT INFORMATION
  Report Type: 
  Country: None (occurrence: None)
  Receive Date: 20070130
  Receipt Date: 20070116
  Transmission Date: 20070707
  Serious: Yes (Hospitalization)
  Sender: FDA-Public Use
  Company Number: US-SHR-US-2006-005582

PATIENT
  Age: 57 Year
  Sex: Female
  Weight: 68.934 kg

DRUGS (8)
  1. BETASERON [Suspect]
     Indication: RELAPSING-REMITTING MULTIPLE SCLEROSIS
     Route: 058
     Dates: start: 20041206, end: 20060207
  2. BETASERON [Suspect]
     Dosage: 8 MIU, EVERY 2D
     Route: 058
     Dates: start: 20060313
  3. NORVASC [Concomitant]
  4. BACLOFEN [Concomitant]
  5. SYNTHROID [Concomitant]
  6. HYDROCHLOROTHIAZIDE [Concomitant]
  7. LIPITOR [Concomitant]
  8. EFFEXOR [Concomitant]

REACTIONS (6)
  - KIDNEY INFECTION [None]
  - NEPHROLITHIASIS [None]
  - PNEUMONIA [None]
  - RENAL NEOPLASM [None]
  - THROMBOSIS [None]
  - URINARY TRACT INFECTION [None]
